FAERS Safety Report 18339841 (Version 2)
Quarter: 2020Q4

REPORT INFORMATION
  Report Type: Spontaneous
  Country: IT (occurrence: IT)
  Receive Date: 20201002
  Receipt Date: 20201015
  Transmission Date: 20210113
  Serious: Yes (Life-Threatening, Hospitalization, Other)
  Sender: FDA-Public Use
  Company Number: IT-PFIZER INC-2020378665

PATIENT
  Age: 81 Year
  Sex: Male

DRUGS (4)
  1. METHYLPREDNISOLONE. [Suspect]
     Active Substance: METHYLPREDNISOLONE
     Dosage: UNK
     Route: 061
     Dates: start: 2019, end: 2019
  2. METHYLPREDNISOLONE. [Suspect]
     Active Substance: METHYLPREDNISOLONE
     Dosage: 7.5 MG, 1X/DAY (SYSTEMIC)
     Dates: start: 2019
  3. METHYLPREDNISOLONE. [Suspect]
     Active Substance: METHYLPREDNISOLONE
     Dosage: 20 MG, 3X/DAY
     Dates: start: 2019, end: 2019
  4. METHYLPREDNISOLONE. [Suspect]
     Active Substance: METHYLPREDNISOLONE
     Indication: DERMATITIS
     Dosage: UNK (SYSTEMIC, TAPERING OVER WEEKS)
     Dates: start: 2019, end: 2019

REACTIONS (10)
  - Cardiac failure congestive [Unknown]
  - Pneumonia pseudomonal [Unknown]
  - Condition aggravated [Recovered/Resolved]
  - Superinfection bacterial [Unknown]
  - Staphylococcal infection [Unknown]
  - Acute pulmonary oedema [Unknown]
  - Immunosuppression [Recovering/Resolving]
  - Pneumonia bacterial [Unknown]
  - Acarodermatitis [Recovered/Resolved]
  - Atrial fibrillation [Unknown]

NARRATIVE: CASE EVENT DATE: 2019
